FAERS Safety Report 13233368 (Version 2)
Quarter: 2017Q2

REPORT INFORMATION
  Report Type: Spontaneous
  Country: US (occurrence: US)
  Receive Date: 20170215
  Receipt Date: 20170530
  Transmission Date: 20170830
  Serious: Yes (Death, Other)
  Sender: FDA-Public Use
  Company Number: US-BRISTOL-MYERS SQUIBB COMPANY-BMS-2017-011394

PATIENT
  Sex: Male

DRUGS (1)
  1. OPDIVO [Suspect]
     Active Substance: NIVOLUMAB
     Indication: URETERIC CANCER
     Dosage: 240 MG, Q2WK
     Route: 042
     Dates: start: 20170104

REACTIONS (2)
  - Death [Fatal]
  - Product use in unapproved indication [Unknown]
